FAERS Safety Report 8908348 (Version 1)
Quarter: 2012Q4

REPORT INFORMATION
  Report Type: 
  Country: FR (occurrence: FR)
  Receive Date: 20121114
  Receipt Date: 20121114
  Transmission Date: 20130627
  Serious: Yes (Disabling, Other)
  Sender: FDA-Public Use
  Company Number: PHHY2012FR104211

PATIENT
  Sex: Female

DRUGS (12)
  1. FEMARA [Suspect]
     Indication: BREAST NEOPLASM
     Dosage: UNK UKN, UNK
     Route: 048
     Dates: start: 2009, end: 201202
  2. KARDEGIC [Concomitant]
     Dosage: UNK UKN, UNK
  3. INEXIUM [Concomitant]
     Dosage: UNK UKN, UNK
  4. LEVOTHYROX [Concomitant]
     Dosage: UNK UKN, UNK
  5. PHOSPHONEUROS [Concomitant]
     Dosage: UNK UKN, UNK
  6. STABLON [Concomitant]
     Dosage: UNK UKN, UNK
  7. FRESUBIN JUCY [Concomitant]
     Dosage: UNK UKN, UNK
  8. DUROGESIC [Concomitant]
     Dosage: UNK UKN, UNK
  9. DEDROGYL [Concomitant]
     Dosage: UNK UKN, UNK
  10. VENOFER [Concomitant]
     Dosage: UNK UKN, UNK
  11. NEORECORMON [Concomitant]
     Dosage: UNK UKN, UNK
  12. RADIOTHERAPY [Concomitant]

REACTIONS (4)
  - Bone lesion [Unknown]
  - Pathological fracture [Recovering/Resolving]
  - Bone pain [Recovering/Resolving]
  - Arthralgia [Recovering/Resolving]
